FAERS Safety Report 7675192-1 (Version None)
Quarter: 2011Q3

REPORT INFORMATION
  Report Type: 
  Country: None (occurrence: None)
  Receive Date: 20110810
  Receipt Date: 20110810
  Transmission Date: 20111222
  Serious: No
  Sender: FDA-Public Use
  Company Number: None

PATIENT
  Age: 56 Year
  Sex: Male
  Weight: 90.718 kg

DRUGS (1)
  1. BYSTOLIC [Suspect]
     Indication: ATRIAL FIBRILLATION
     Dosage: ONE TABLET
     Route: 048
     Dates: start: 20110316, end: 20110715

REACTIONS (2)
  - MIGRAINE [None]
  - VERTIGO POSITIONAL [None]
